FAERS Safety Report 7884195-3 (Version None)
Quarter: 2011Q4

REPORT INFORMATION
  Report Type: 
  Country: None (occurrence: None)
  Receive Date: 20111102
  Receipt Date: 20111027
  Transmission Date: 20120403
  Serious: Yes (Death)
  Sender: FDA-Public Use
  Company Number: US-AMGEN-USASP2011056093

PATIENT
  Sex: Male

DRUGS (3)
  1. IMMUNE GLOBULIN NOS [Concomitant]
     Indication: IDIOPATHIC THROMBOCYTOPENIC PURPURA
  2. NPLATE [Suspect]
     Indication: IDIOPATHIC THROMBOCYTOPENIC PURPURA
     Dates: start: 20110804, end: 20110818
  3. CORTICOSTEROIDS [Concomitant]
     Indication: IDIOPATHIC THROMBOCYTOPENIC PURPURA

REACTIONS (3)
  - CORONARY ARTERY DISEASE [None]
  - RESPIRATORY FAILURE [None]
  - CHRONIC OBSTRUCTIVE PULMONARY DISEASE [None]
